FAERS Safety Report 25353232 (Version 1)
Quarter: 2025Q2

REPORT INFORMATION
  Report Type: Spontaneous
  Country: CZ (occurrence: CZ)
  Receive Date: 20250523
  Receipt Date: 20250523
  Transmission Date: 20250717
  Serious: Yes (Hospitalization)
  Sender: BOEHRINGER INGELHEIM
  Company Number: CZ-BoehringerIngelheim-2025-BI-071378

PATIENT
  Age: 75 Year
  Sex: Male

DRUGS (12)
  1. EMPAGLIFLOZIN [Suspect]
     Active Substance: EMPAGLIFLOZIN
     Indication: Chronic kidney disease
  2. ASPIRIN [Concomitant]
     Active Substance: ASPIRIN
  3. RIVAROXABAN [Concomitant]
     Active Substance: RIVAROXABAN
  4. ATORVASTATIN [Concomitant]
     Active Substance: ATORVASTATIN
  5. METOPROLOL [Concomitant]
     Active Substance: METOPROLOL
  6. TRANDOLAPRIL [Concomitant]
     Active Substance: TRANDOLAPRIL
  7. LERCANIDIPINE [Concomitant]
     Active Substance: LERCANIDIPINE
  8. FUROSEMIDE [Concomitant]
     Active Substance: FUROSEMIDE
  9. CALCITRIOL [Concomitant]
     Active Substance: CALCITRIOL
  10. SODIUM BICARBONATE [Concomitant]
     Active Substance: SODIUM BICARBONATE
  11. INSULIN ASPART [Concomitant]
     Active Substance: INSULIN ASPART
  12. INSULIN GLARGINE [Concomitant]
     Active Substance: INSULIN GLARGINE

REACTIONS (4)
  - Asthenia [Unknown]
  - Back pain [Unknown]
  - Dizziness [Unknown]
  - Gastroenteritis viral [Unknown]
